FAERS Safety Report 17629729 (Version 1)
Quarter: 2020Q2

REPORT INFORMATION
  Report Type: Spontaneous
  Country: US (occurrence: US)
  Receive Date: 20200403
  Receipt Date: 20200403
  Transmission Date: 20200713
  Serious: No
  Sender: FDA-Public Use
  Company Number: None

PATIENT
  Age: 55 Year
  Sex: Male

DRUGS (1)
  1. BOTOX [Suspect]
     Active Substance: ONABOTULINUMTOXINA
     Indication: MIGRAINE
     Dosage: ?          OTHER STRENGTH:200U/VL;OTHER DOSE:200 UNITS;OTHER FREQUENCY:EVERY 12 WEEKS;?
     Route: 030
     Dates: start: 201910

REACTIONS (1)
  - Burning sensation [None]

NARRATIVE: CASE EVENT DATE: 202002
